FAERS Safety Report 7374811-7 (Version None)
Quarter: 2011Q1

REPORT INFORMATION
  Report Type: 
  Country: None (occurrence: None)
  Receive Date: 20110325
  Receipt Date: 20101220
  Transmission Date: 20110831
  Serious: No
  Sender: FDA-Public Use
  Company Number: US-MYLANLABS-2010S1023425

PATIENT
  Age: 59 Year
  Sex: Female

DRUGS (10)
  1. FENTANYL-100 [Suspect]
     Dosage: Q72HR
     Route: 062
     Dates: start: 20101122, end: 20101128
  2. FENTANYL-100 [Suspect]
     Dosage: Q72HR
     Route: 062
     Dates: start: 20101129, end: 20101216
  3. PRAVASTATIN [Concomitant]
     Route: 048
  4. FENTANYL-100 [Suspect]
     Dosage: Q72HR
     Route: 062
     Dates: start: 20101129, end: 20101216
  5. FENTANYL-100 [Suspect]
     Indication: NECK PAIN
     Dosage: Q72HR
     Route: 062
     Dates: start: 20101122, end: 20101128
  6. BENADRYL [Concomitant]
     Route: 048
  7. OXYCONTIN [Concomitant]
     Dosage: 10-20MG
     Route: 048
  8. PERCOCET [Concomitant]
     Route: 048
  9. FENTANYL-100 [Suspect]
     Dosage: Q72HR
     Route: 062
     Dates: start: 20101217
  10. PROVENTIL [Concomitant]
     Route: 055

REACTIONS (6)
  - HICCUPS [None]
  - INFLUENZA LIKE ILLNESS [None]
  - DYSPNOEA [None]
  - TACHYCARDIA [None]
  - LETHARGY [None]
  - NASAL CONGESTION [None]
